FAERS Safety Report 21753593 (Version 4)
Quarter: 2023Q1

REPORT INFORMATION
  Report Type: Report from Study
  Country: US (occurrence: US)
  Receive Date: 20221220
  Receipt Date: 20230302
  Transmission Date: 20230418
  Serious: Yes (Hospitalization, Other)
  Sender: FDA-Public Use
  Company Number: US-JNJFOC-20221224588

PATIENT
  Age: 33 Year
  Sex: Female

DRUGS (3)
  1. STELARA [Suspect]
     Active Substance: USTEKINUMAB
     Indication: Crohn^s disease
     Dosage: 90 MG/ML
     Route: 058
     Dates: start: 2021
  2. STELARA [Suspect]
     Active Substance: USTEKINUMAB
     Dosage: 90 MG/ML
     Route: 058
     Dates: start: 202201
  3. STELARA [Suspect]
     Active Substance: USTEKINUMAB
     Dosage: 90 MG/ML
     Route: 058
     Dates: start: 20221125

REACTIONS (11)
  - Muscle abscess [Not Recovered/Not Resolved]
  - Purulent discharge [Recovering/Resolving]
  - Catheter site pain [Recovering/Resolving]
  - Catheter site erythema [Recovering/Resolving]
  - Intestinal anastomosis [Recovering/Resolving]
  - Premature labour [Recovered/Resolved]
  - Crohn^s disease [Recovering/Resolving]
  - Drug level decreased [Unknown]
  - Exposure during pregnancy [Recovered/Resolved]
  - Off label use [Unknown]
  - Drug ineffective [Unknown]

NARRATIVE: CASE EVENT DATE: 20221001
